FAERS Safety Report 17996094 (Version 1)
Quarter: 2020Q3

REPORT INFORMATION
  Report Type: Spontaneous
  Country: US (occurrence: US)
  Receive Date: 20200708
  Receipt Date: 20200708
  Transmission Date: 20201103
  Serious: Yes (Death, Other)
  Sender: FDA-Public Use
  Company Number: US-BIOVITRUM-2019SF84999

PATIENT
  Age: 2 Month
  Sex: Female
  Weight: 5 kg

DRUGS (4)
  1. DIGOXIN. [Concomitant]
     Active Substance: DIGOXIN
  2. LASIX [Concomitant]
     Active Substance: FUROSEMIDE
  3. SYNAGIS [Suspect]
     Active Substance: PALIVIZUMAB
     Indication: PRODUCT USED FOR UNKNOWN INDICATION
     Route: 030
     Dates: start: 201911, end: 201911
  4. SYNAGIS [Suspect]
     Active Substance: PALIVIZUMAB
     Dosage: 0.7 ML
     Route: 030
     Dates: start: 20191213, end: 20191213

REACTIONS (4)
  - Trisomy 21 [Unknown]
  - Gastrooesophageal reflux disease [Unknown]
  - Death [Fatal]
  - Heart disease congenital [Unknown]

NARRATIVE: CASE EVENT DATE: 20191214
